FAERS Safety Report 7472229-X (Version None)
Quarter: 2011Q2

REPORT INFORMATION
  Report Type: 
  Country: None (occurrence: None)
  Receive Date: 20110502
  Receipt Date: 20110414
  Transmission Date: 20111010
  Serious: No
  Sender: FDA-Public Use
  Company Number: 2011AT000140

PATIENT
  Age: 52 Year
  Sex: Male

DRUGS (1)
  1. EDEX [Suspect]
     Indication: ERECTILE DYSFUNCTION
     Dosage: 10 UG;
     Dates: start: 20110201

REACTIONS (1)
  - PREGNANCY OF PARTNER [None]
